FAERS Safety Report 6655711-4 (Version None)
Quarter: 2010Q1

REPORT INFORMATION
  Report Type: 
  Country: None (occurrence: None)
  Receive Date: 20100329
  Receipt Date: 20100322
  Transmission Date: 20100710
  Serious: Yes (Hospitalization, Other)
  Sender: FDA-Public Use
  Company Number: BR-SANOFI-AVENTIS-2010SA016749

PATIENT
  Sex: Female
  Weight: 45 kg

DRUGS (4)
  1. LANTUS [Suspect]
     Route: 058
     Dates: start: 20090501
  2. SOLOSTAR [Suspect]
     Dates: start: 20090501
  3. HUMALOG [Concomitant]
     Dosage: ACCORDING TO CARBOHYDRATE COUNT
     Route: 058
  4. PURAN T4 [Concomitant]
     Indication: HYPOTHYROIDISM
     Route: 048

REACTIONS (2)
  - HYPERGLYCAEMIA [None]
  - KETOACIDOSIS [None]
